FAERS Safety Report 13558852 (Version 3)
Quarter: 2020Q3

REPORT INFORMATION
  Report Type: Report from Study
  Country: JP (occurrence: JP)
  Receive Date: 20170518
  Receipt Date: 20171016
  Transmission Date: 20201105
  Serious: Yes (Life-Threatening, Hospitalization)
  Sender: FDA-Public Use
  Company Number: JP-ASTRAZENECA-2016SF26281

PATIENT
  Age: 28907 Day
  Sex: Male

DRUGS (78)
  1. MEDI4736 [Suspect]
     Active Substance: DURVALUMAB
     Indication: BLADDER TRANSITIONAL CELL CARCINOMA
     Route: 042
     Dates: start: 20160915, end: 20160915
  2. SOLU?CORTEF [Concomitant]
     Active Substance: HYDROCORTISONE SODIUM SUCCINATE
     Indication: HYPOPHYSITIS
     Route: 042
     Dates: start: 20161109, end: 20161109
  3. SOLU?CORTEF [Concomitant]
     Active Substance: HYDROCORTISONE SODIUM SUCCINATE
     Indication: HYPOPHYSITIS
     Route: 042
     Dates: start: 20161113, end: 20161114
  4. SOLU?CORTEF [Concomitant]
     Active Substance: HYDROCORTISONE SODIUM SUCCINATE
     Indication: HYPOPHYSITIS
     Route: 042
     Dates: start: 20161117, end: 20161117
  5. SOLU?CORTEF [Concomitant]
     Active Substance: HYDROCORTISONE SODIUM SUCCINATE
     Indication: HYPOPHYSITIS
     Route: 042
     Dates: start: 20161220, end: 20161221
  6. CORTRIL [Concomitant]
     Active Substance: HYDROCORTISONE
     Indication: HYPOPHYSITIS
     Dosage: 20.0MG ONCE/SINGLE ADMINISTRATION
     Route: 048
     Dates: start: 20161225, end: 20161227
  7. MEDI4736 [Suspect]
     Active Substance: DURVALUMAB
     Indication: BLADDER TRANSITIONAL CELL CARCINOMA
     Route: 042
     Dates: start: 20161013, end: 20161013
  8. TREMELIMUMAB. [Suspect]
     Active Substance: TREMELIMUMAB
     Indication: BLADDER TRANSITIONAL CELL CARCINOMA
     Route: 042
     Dates: start: 20160818, end: 20160818
  9. EURODIN [Concomitant]
     Indication: INSOMNIA
     Dosage: 2.0MG AS REQUIRED
     Route: 048
  10. SENNOSIDE [Concomitant]
     Active Substance: SENNOSIDES
     Indication: CONSTIPATION
     Dosage: 24.0MG AS REQUIRED
     Route: 048
  11. MEROPENEM. [Concomitant]
     Active Substance: MEROPENEM
     Indication: PNEUMONIA
     Route: 042
     Dates: start: 20161113, end: 20161114
  12. INOVAN [Concomitant]
     Active Substance: DOPAMINE HYDROCHLORIDE
     Indication: ILEUS
     Route: 042
     Dates: start: 20161110, end: 20161112
  13. INOVAN [Concomitant]
     Active Substance: DOPAMINE HYDROCHLORIDE
     Indication: ILEUS
     Dosage: 150.0MG AS REQUIRED
     Route: 042
     Dates: start: 20161127, end: 20161127
  14. FUROSEMIDE. [Concomitant]
     Active Substance: FUROSEMIDE
     Indication: CARDIAC FAILURE
     Route: 042
     Dates: start: 20161113, end: 20161116
  15. FUROSEMIDE. [Concomitant]
     Active Substance: FUROSEMIDE
     Indication: CARDIAC FAILURE
     Route: 042
     Dates: start: 20161129, end: 20161201
  16. PANTOL [Concomitant]
     Active Substance: DEXPANTHENOL
     Indication: ILEUS
     Route: 042
     Dates: start: 20161126, end: 20161126
  17. SOLU?CORTEF [Concomitant]
     Active Substance: HYDROCORTISONE SODIUM SUCCINATE
     Indication: HYPOPHYSITIS
     Route: 042
     Dates: start: 20161115, end: 20161115
  18. SOLU?CORTEF [Concomitant]
     Active Substance: HYDROCORTISONE SODIUM SUCCINATE
     Indication: HYPOPHYSITIS
     Route: 042
     Dates: start: 20161115, end: 20161117
  19. MEROPENEM. [Concomitant]
     Active Substance: MEROPENEM
     Indication: PNEUMONIA
     Route: 042
     Dates: start: 20161115, end: 20161115
  20. ONOACT [Concomitant]
     Active Substance: LANDIOLOL HYDROCHLORIDE
     Indication: CARDIAC FAILURE
     Route: 042
     Dates: start: 20161113, end: 20161116
  21. HIRUDOID [Concomitant]
     Active Substance: GLYCOSAMINOGLYCANS
     Indication: RASH
     Dosage: 1 APPLICATION, PRN
     Route: 062
     Dates: start: 20161114
  22. MEDI4736 [Suspect]
     Active Substance: DURVALUMAB
     Indication: BLADDER TRANSITIONAL CELL CARCINOMA
     Route: 042
     Dates: start: 20160818, end: 20160818
  23. SOLU?CORTEF [Concomitant]
     Active Substance: HYDROCORTISONE SODIUM SUCCINATE
     Indication: HYPOPHYSITIS
     Route: 042
     Dates: start: 20161212, end: 20161214
  24. SOLU?CORTEF [Concomitant]
     Active Substance: HYDROCORTISONE SODIUM SUCCINATE
     Indication: HYPOPHYSITIS
     Route: 042
     Dates: start: 20161218, end: 20161219
  25. LIXIANA [Concomitant]
     Active Substance: EDOXABAN TOSYLATE
     Indication: ATRIAL FIBRILLATION
     Route: 048
     Dates: start: 20161125, end: 20161211
  26. CORTRIL [Concomitant]
     Active Substance: HYDROCORTISONE
     Indication: HYPOPHYSITIS
     Dosage: 15.0MG ONCE/SINGLE ADMINISTRATION
     Route: 048
     Dates: start: 20161228
  27. BROTIZOLAM [Concomitant]
     Active Substance: BROTIZOLAM
     Indication: INSOMNIA
     Dosage: 25.0MG AS REQUIRED
     Route: 048
  28. DICLOFENAC SODIUM. [Concomitant]
     Active Substance: DICLOFENAC SODIUM
     Indication: PHANTOM LIMB SYNDROME
     Dosage: 12.5MG AS REQUIRED
     Route: 054
     Dates: start: 20161013
  29. PANTOL [Concomitant]
     Active Substance: DEXPANTHENOL
     Indication: ILEUS
     Route: 042
     Dates: start: 20161109, end: 20161124
  30. SOLU?CORTEF [Concomitant]
     Active Substance: HYDROCORTISONE SODIUM SUCCINATE
     Indication: HYPOPHYSITIS
     Route: 042
     Dates: start: 20161112, end: 20161112
  31. SOLU?CORTEF [Concomitant]
     Active Substance: HYDROCORTISONE SODIUM SUCCINATE
     Indication: HYPOPHYSITIS
     Route: 042
     Dates: start: 20161116, end: 20161116
  32. SOLU?CORTEF [Concomitant]
     Active Substance: HYDROCORTISONE SODIUM SUCCINATE
     Indication: HYPOPHYSITIS
     Route: 042
     Dates: start: 20161215, end: 20161215
  33. GLUCOSE [Concomitant]
     Active Substance: DEXTROSE
     Indication: HYPOGLYCAEMIA
     Dosage: 40.0ML AS REQUIRED
     Route: 042
     Dates: start: 20161130, end: 20161211
  34. VASOLAN [VERAPAMIL HYDROCHLORIDE] [Concomitant]
     Active Substance: VERAPAMIL HYDROCHLORIDE
     Indication: CARDIAC FAILURE
     Route: 042
     Dates: start: 20161113, end: 20161113
  35. FUROSEMIDE. [Concomitant]
     Active Substance: FUROSEMIDE
     Indication: CARDIAC FAILURE
     Route: 042
     Dates: start: 20161203, end: 20161203
  36. MAINTATE [Concomitant]
     Active Substance: BISOPROLOL FUMARATE
     Indication: ATRIAL FIBRILLATION
     Route: 048
     Dates: start: 20161125, end: 20161211
  37. NEW LECICARBON [Concomitant]
     Active Substance: SODIUM BICARBONATE\SODIUM PHOSPHATE, MONOBASIC
     Indication: CONSTIPATION
     Dosage: 1 UNK
     Route: 054
     Dates: start: 20161126, end: 20161126
  38. CORTRIL [Concomitant]
     Active Substance: HYDROCORTISONE
     Indication: HYPOPHYSITIS
     Dosage: 20.0MG ONCE/SINGLE ADMINISTRATION
     Route: 048
     Dates: start: 20161222, end: 20161224
  39. CORTRIL [Concomitant]
     Active Substance: HYDROCORTISONE
     Indication: HYPOPHYSITIS
     Dosage: 10.0MG ONCE/SINGLE ADMINISTRATION
     Route: 048
     Dates: start: 20161225, end: 20161227
  40. CORTRIL [Concomitant]
     Active Substance: HYDROCORTISONE
     Indication: HYPOPHYSITIS
     Dosage: 5.0MG ONCE/SINGLE ADMINISTRATION
     Route: 048
     Dates: start: 20161228
  41. TREMELIMUMAB. [Suspect]
     Active Substance: TREMELIMUMAB
     Indication: BLADDER TRANSITIONAL CELL CARCINOMA
     Route: 042
     Dates: start: 20160915, end: 20160915
  42. TALION (BEPOTASTINE BESYLATE) [Concomitant]
     Active Substance: BEPOTASTINE BESYLATE
     Indication: RASH
     Route: 048
     Dates: start: 20160923
  43. SODIUM CHLORIDE. [Concomitant]
     Active Substance: SODIUM CHLORIDE
     Indication: ILEUS
     Dosage: 1500.0ML AS REQUIRED
     Route: 042
     Dates: start: 20161109, end: 20161112
  44. SOLU?CORTEF [Concomitant]
     Active Substance: HYDROCORTISONE SODIUM SUCCINATE
     Indication: HYPOPHYSITIS
     Route: 042
     Dates: start: 20161110, end: 20161111
  45. SOLU?CORTEF [Concomitant]
     Active Substance: HYDROCORTISONE SODIUM SUCCINATE
     Indication: HYPOPHYSITIS
     Route: 042
     Dates: start: 20161127, end: 20161127
  46. SOLU?CORTEF [Concomitant]
     Active Substance: HYDROCORTISONE SODIUM SUCCINATE
     Indication: HYPOPHYSITIS
     Route: 042
     Dates: start: 20161218, end: 20161219
  47. MEROPENEM. [Concomitant]
     Active Substance: MEROPENEM
     Indication: PNEUMONIA
     Route: 042
     Dates: start: 20161116, end: 20161122
  48. OMEPRAZOLE SODIUM [Concomitant]
     Active Substance: OMEPRAZOLE SODIUM
     Indication: ILEUS
     Route: 042
     Dates: start: 20161112, end: 20161120
  49. GLUCOSE [Concomitant]
     Active Substance: DEXTROSE
     Indication: HYPOGLYCAEMIA
     Dosage: 40.0ML AS REQUIRED
     Route: 042
     Dates: start: 20161112, end: 20161126
  50. HANP [Concomitant]
     Active Substance: CARPERITIDE
     Indication: CARDIAC FAILURE
     Route: 042
     Dates: start: 20161114, end: 20161120
  51. CORTRIL [Concomitant]
     Active Substance: HYDROCORTISONE
     Indication: HYPOPHYSITIS
     Route: 048
     Dates: start: 20161013, end: 20161108
  52. CORTRIL [Concomitant]
     Active Substance: HYDROCORTISONE
     Indication: HYPOPHYSITIS
     Dosage: 10.0MG ONCE/SINGLE ADMINISTRATION
     Route: 048
     Dates: start: 20161121, end: 20161121
  53. CORTRIL [Concomitant]
     Active Substance: HYDROCORTISONE
     Indication: HYPOPHYSITIS
     Dosage: 20.0MG ONCE/SINGLE ADMINISTRATION
     Route: 048
     Dates: start: 20161122, end: 20161126
  54. TREMELIMUMAB. [Suspect]
     Active Substance: TREMELIMUMAB
     Indication: BLADDER TRANSITIONAL CELL CARCINOMA
     Route: 042
     Dates: start: 20161013, end: 20161013
  55. RINDERON VG [Concomitant]
     Active Substance: BETAMETHASONE VALERATE\GENTAMICIN SULFATE
     Indication: RASH
     Dosage: 1 APPLICATION, DAILY
     Route: 062
     Dates: start: 20160923
  56. FEBURIC [Concomitant]
     Active Substance: FEBUXOSTAT
     Indication: HYPERURICAEMIA
     Route: 048
     Dates: start: 20161013
  57. SOLU?CORTEF [Concomitant]
     Active Substance: HYDROCORTISONE SODIUM SUCCINATE
     Indication: HYPOPHYSITIS
     Route: 042
     Dates: start: 20161128, end: 20161130
  58. SOLU?CORTEF [Concomitant]
     Active Substance: HYDROCORTISONE SODIUM SUCCINATE
     Indication: HYPOPHYSITIS
     Route: 042
     Dates: start: 20161204, end: 20161206
  59. SOLU?CORTEF [Concomitant]
     Active Substance: HYDROCORTISONE SODIUM SUCCINATE
     Indication: HYPOPHYSITIS
     Route: 042
     Dates: start: 20161215, end: 20161215
  60. SOLU?CORTEF [Concomitant]
     Active Substance: HYDROCORTISONE SODIUM SUCCINATE
     Indication: HYPOPHYSITIS
     Route: 042
     Dates: start: 20161216, end: 20161217
  61. MEROPENEM. [Concomitant]
     Active Substance: MEROPENEM
     Indication: PNEUMONIA
     Route: 042
     Dates: start: 20161110, end: 20161112
  62. MAINTATE [Concomitant]
     Active Substance: BISOPROLOL FUMARATE
     Indication: ATRIAL FIBRILLATION
     Route: 048
     Dates: start: 20170106
  63. LIXIANA [Concomitant]
     Active Substance: EDOXABAN TOSYLATE
     Indication: ATRIAL FIBRILLATION
     Route: 048
     Dates: start: 20170106
  64. CORTRIL [Concomitant]
     Active Substance: HYDROCORTISONE
     Indication: HYPOPHYSITIS
     Route: 048
     Dates: start: 20161013, end: 20161108
  65. CORTRIL [Concomitant]
     Active Substance: HYDROCORTISONE
     Indication: HYPOPHYSITIS
     Dosage: 10.0MG ONCE/SINGLE ADMINISTRATION
     Route: 048
     Dates: start: 20161122, end: 20161126
  66. DIPHENHYDRAMINE. [Concomitant]
     Active Substance: DIPHENHYDRAMINE
     Indication: RASH
     Dosage: 1 APPLICATION DAILY
     Route: 062
     Dates: start: 20160914
  67. SOLULACT [Concomitant]
     Indication: ILEUS
     Dosage: 1000 ML, QH
     Route: 042
     Dates: start: 20161109, end: 20161117
  68. BFLUID [Concomitant]
     Active Substance: AMINO ACIDS\DEXTROSE\ELECTROLYTES NOS\VITAMINS
     Indication: ILEUS
     Dosage: 1000.0ML AS REQUIRED
     Route: 042
     Dates: start: 20161110, end: 20161126
  69. SOLU?CORTEF [Concomitant]
     Active Substance: HYDROCORTISONE SODIUM SUCCINATE
     Indication: HYPOPHYSITIS
     Route: 042
     Dates: start: 20161109, end: 20161121
  70. SOLU?CORTEF [Concomitant]
     Active Substance: HYDROCORTISONE SODIUM SUCCINATE
     Indication: HYPOPHYSITIS
     Route: 042
     Dates: start: 20161111, end: 20161111
  71. SOLU?CORTEF [Concomitant]
     Active Substance: HYDROCORTISONE SODIUM SUCCINATE
     Indication: HYPOPHYSITIS
     Route: 042
     Dates: start: 20161118, end: 20161121
  72. SOLU?CORTEF [Concomitant]
     Active Substance: HYDROCORTISONE SODIUM SUCCINATE
     Indication: HYPOPHYSITIS
     Route: 042
     Dates: start: 20161201, end: 20161203
  73. SOLU?CORTEF [Concomitant]
     Active Substance: HYDROCORTISONE SODIUM SUCCINATE
     Indication: HYPOPHYSITIS
     Route: 042
     Dates: start: 20161207, end: 20161209
  74. SOLU?CORTEF [Concomitant]
     Active Substance: HYDROCORTISONE SODIUM SUCCINATE
     Indication: HYPOPHYSITIS
     Route: 042
     Dates: start: 20161210, end: 20161211
  75. MEROPENEM. [Concomitant]
     Active Substance: MEROPENEM
     Indication: PNEUMONIA
     Route: 042
     Dates: start: 20161115, end: 20161115
  76. ATARAX?P [Concomitant]
     Active Substance: HYDROXYZINE HYDROCHLORIDE
     Indication: RESTLESSNESS
     Route: 042
     Dates: start: 20161114, end: 20161114
  77. HANP [Concomitant]
     Active Substance: CARPERITIDE
     Indication: CARDIAC FAILURE
     Route: 042
     Dates: start: 20161128, end: 20161129
  78. HANP [Concomitant]
     Active Substance: CARPERITIDE
     Indication: CARDIAC FAILURE
     Route: 042
     Dates: start: 20161130, end: 20161202

REACTIONS (3)
  - Ileus [Recovered/Resolved]
  - Acute kidney injury [Recovered/Resolved]
  - Septic shock [Recovered/Resolved]

NARRATIVE: CASE EVENT DATE: 20161126
